FAERS Safety Report 4413268-2 (Version None)
Quarter: 2004Q3

REPORT INFORMATION
  Report Type: 
  Country: None (occurrence: None)
  Receive Date: 20040728
  Receipt Date: 20040722
  Transmission Date: 20050211
  Serious: Yes (Other)
  Sender: FDA-Public Use
  Company Number: HQWYE392623JUL04

PATIENT
  Age: 58 Year
  Sex: Male
  Weight: 77.18 kg

DRUGS (3)
  1. PROTONIX [Suspect]
     Indication: OESOPHAGITIS
     Dosage: 40 MG 2X PER 1 DAY, ORAL
     Route: 048
     Dates: start: 20040701
  2. TENOFOVIR  DISOPROXYL FUMARATE (DISOPROXYL FUMARATE) [Suspect]
     Indication: HIV INFECTION
     Dosage: 300 MG 1 X PER 1 DAY
  3. TRIZIVIR [Suspect]
     Indication: HIV INFECTION
     Dosage: 1 TABLE 2X PER 1 DAY

REACTIONS (2)
  - BLOOD HIV RNA INCREASED [None]
  - DRUG INTERACTION [None]
